FAERS Safety Report 7250693-9 (Version None)
Quarter: 2011Q1

REPORT INFORMATION
  Report Type: 
  Country: None (occurrence: None)
  Receive Date: 20110121
  Receipt Date: 20110121
  Transmission Date: 20110831
  Serious: Yes (Other)
  Sender: FDA-Public Use
  Company Number: None

PATIENT
  Age: 52 Year
  Sex: Female
  Weight: 81.6475 kg

DRUGS (3)
  1. ALCOHOL PREP PAD STERILE 70% ISOPROPYL ALCOHOL TRIAD GROUP, INC [Suspect]
     Dosage: 1 PAD DAILY
     Dates: start: 20110106, end: 20110120
  2. COPAXONE [Concomitant]
  3. PROVIGIL [Concomitant]

REACTIONS (4)
  - DIARRHOEA [None]
  - PRODUCT QUALITY ISSUE [None]
  - MALAISE [None]
  - ABDOMINAL PAIN UPPER [None]
